FAERS Safety Report 25420344 (Version 1)
Quarter: 2025Q2

REPORT INFORMATION
  Report Type: Spontaneous
  Country: DE (occurrence: DE)
  Receive Date: 20250610
  Receipt Date: 20250610
  Transmission Date: 20250717
  Serious: Yes (Hospitalization, Other)
  Sender: JOHNSON AND JOHNSON
  Company Number: HR-BAYER-2024A131834

PATIENT
  Age: 77 Year
  Sex: Male
  Weight: 81 kg

DRUGS (3)
  1. XARELTO [Suspect]
     Active Substance: RIVAROXABAN
     Indication: Thrombosis
     Dosage: 15 MG, QD
     Route: 048
     Dates: start: 2020, end: 20240817
  2. IMETELSTAT [Concomitant]
     Active Substance: IMETELSTAT
     Indication: Myelodysplastic syndrome
     Dates: start: 20200817, end: 20201022
  3. IMETELSTAT [Concomitant]
     Active Substance: IMETELSTAT
     Dates: start: 20201125, end: 20240808

REACTIONS (5)
  - Craniocerebral injury [Recovered/Resolved]
  - Fall [Recovered/Resolved]
  - Subdural haemorrhage [Recovered/Resolved]
  - Haematoma infection [Unknown]
  - Pneumonia [Unknown]

NARRATIVE: CASE EVENT DATE: 20240817
